FAERS Safety Report 23048405 (Version 1)
Quarter: 2023Q4

REPORT INFORMATION
  Report Type: Spontaneous
  Country: US (occurrence: US)
  Receive Date: 20231010
  Receipt Date: 20231010
  Transmission Date: 20240110
  Serious: No
  Sender: FDA-Public Use
  Company Number: US-SANDOZ-SDZ2023US040097

PATIENT
  Sex: Female

DRUGS (3)
  1. RECLAST [Suspect]
     Active Substance: ZOLEDRONIC ACID
     Dosage: 2.5 MG
     Route: 065
     Dates: start: 20230810
  2. RECLAST [Suspect]
     Active Substance: ZOLEDRONIC ACID
     Dosage: 2.5 MG
     Route: 065
     Dates: start: 20230908
  3. RECLAST [Suspect]
     Active Substance: ZOLEDRONIC ACID
     Indication: Product used for unknown indication
     Dosage: 5 MG
     Route: 065

REACTIONS (3)
  - Vertigo [Unknown]
  - Myalgia [Unknown]
  - Dizziness [Unknown]
